FAERS Safety Report 14822854 (Version 2)
Quarter: 2018Q4

REPORT INFORMATION
  Report Type: Spontaneous
  Country: GB (occurrence: GB)
  Receive Date: 20180427
  Receipt Date: 20181206
  Transmission Date: 20190204
  Serious: Yes (Other)
  Sender: FDA-Public Use
  Company Number: GB-PFIZER INC-2018164643

PATIENT

DRUGS (2)
  1. METHOTREXATE SODIUM. [Suspect]
     Active Substance: METHOTREXATE SODIUM
     Dosage: UNK
     Route: 065
  2. INFLIXIMAB [Suspect]
     Active Substance: INFLIXIMAB
     Dosage: UNK UNK, MONTHLY (1 EVERY 4 WEEKS (Q4W))
     Route: 065

REACTIONS (9)
  - Arthritis [Unknown]
  - Ocular sarcoidosis [Unknown]
  - Sarcoidosis [Unknown]
  - Nodular rash [Unknown]
  - Skin mass [Unknown]
  - Eye inflammation [Unknown]
  - Pyrexia [Unknown]
  - Granuloma [Unknown]
  - Inflammatory marker increased [Unknown]
